FAERS Safety Report 7889484-4 (Version None)
Quarter: 2011Q4

REPORT INFORMATION
  Report Type: 
  Country: None (occurrence: None)
  Receive Date: 20111103
  Receipt Date: 20111027
  Transmission Date: 20120403
  Serious: Yes (Other)
  Sender: FDA-Public Use
  Company Number: US-BAYER-2011-105398

PATIENT
  Age: 50 Year
  Sex: Female
  Weight: 79 kg

DRUGS (6)
  1. MOTRIN [Suspect]
     Dosage: 200 MG, BID
  2. ALEVE (CAPLET) [Suspect]
     Indication: ARTHRALGIA
  3. ALEVE (CAPLET) [Suspect]
  4. MOTRIN [Suspect]
     Indication: JOINT SWELLING
     Dosage: 200 MG, UNK
  5. ACETAMINOPHEN [Suspect]
     Indication: JOINT SWELLING
     Dosage: UNK
  6. ACETAMINOPHEN [Concomitant]

REACTIONS (10)
  - IRON DEFICIENCY ANAEMIA [None]
  - FLUSHING [None]
  - ERUCTATION [None]
  - DYSPHAGIA [None]
  - ENDODONTIC PROCEDURE [None]
  - ARTHRALGIA [None]
  - ABDOMINAL DISCOMFORT [None]
  - COELIAC DISEASE [None]
  - HAEMOGLOBIN DECREASED [None]
  - GASTROINTESTINAL HAEMORRHAGE [None]
